FAERS Safety Report 13163684 (Version 1)
Quarter: 2017Q1

REPORT INFORMATION
  Report Type: Spontaneous
  Country: NO (occurrence: NO)
  Receive Date: 20170130
  Receipt Date: 20170130
  Transmission Date: 20170428
  Serious: Yes (Disabling)
  Sender: FDA-Public Use
  Company Number: NO-TEVA-731700ACC

PATIENT
  Age: 52 Year
  Sex: Female
  Weight: 80 kg

DRUGS (2)
  1. EPIRUBICIN ACTAVIS [Suspect]
     Active Substance: EPIRUBICIN
     Indication: BREAST CANCER
     Dates: start: 20160829, end: 20161010
  2. DEXAMETHASON ABCUR [Concomitant]
     Indication: DRUG TOXICITY PROPHYLAXIS
     Dates: start: 20160829, end: 20161017

REACTIONS (3)
  - Visual acuity reduced [Not Recovered/Not Resolved]
  - Tooth injury [Not Recovered/Not Resolved]
  - Device failure [Not Recovered/Not Resolved]

NARRATIVE: CASE EVENT DATE: 20160901
